FAERS Safety Report 4586475-6 (Version None)
Quarter: 2005Q1

REPORT INFORMATION
  Report Type: 
  Country: None (occurrence: None)
  Receive Date: 20050218
  Receipt Date: 20040722
  Transmission Date: 20050727
  Serious: Yes (Life-Threatening, Hospitalization)
  Sender: FDA-Public Use
  Company Number: FR-ROCHE-375115

PATIENT
  Age: 56 Year
  Sex: Male

DRUGS (19)
  1. MYCOPHENOLATE MOFETIL [Suspect]
     Route: 065
     Dates: start: 20040712, end: 20040715
  2. MYCOPHENOLATE MOFETIL [Suspect]
     Route: 065
     Dates: start: 20040716, end: 20040720
  3. MYCOPHENOLATE MOFETIL [Suspect]
     Dosage: DOSE CHANGE DUE TO MEDICAL ERROR
     Route: 065
     Dates: start: 20040721, end: 20040721
  4. MYCOPHENOLATE MOFETIL [Suspect]
     Dosage: DOSE CHANGED DUE TO ADVERSE EVENT
     Route: 065
     Dates: start: 20040722, end: 20040728
  5. VALGANCICLOVIR [Suspect]
     Indication: ANTIVIRAL PROPHYLAXIS
     Route: 065
     Dates: start: 20040713, end: 20040726
  6. BACTRIM [Suspect]
     Route: 065
     Dates: start: 20040717, end: 20040726
  7. CYCLOSPORINE [Suspect]
     Route: 065
     Dates: start: 20040712, end: 20040716
  8. CYCLOSPORINE [Suspect]
     Route: 065
     Dates: start: 20040726
  9. METHYLPREDNISOLONE [Suspect]
     Route: 065
     Dates: start: 20040712, end: 20040719
  10. METHYLPREDNISOLONE [Suspect]
     Route: 065
     Dates: start: 20040720, end: 20040727
  11. METHYLPREDNISOLONE [Suspect]
     Route: 065
     Dates: start: 20040728
  12. DOPAMINE HCL [Suspect]
     Indication: ANURIA
     Route: 065
     Dates: start: 20040712, end: 20040717
  13. AMIODARONE HCL [Concomitant]
     Dates: start: 20040717
  14. CIPRALAN [Concomitant]
     Indication: ARRHYTHMIA
     Dates: start: 20040717, end: 20040717
  15. DIGOXIN [Concomitant]
     Dates: start: 20040717, end: 20040717
  16. DILTIAZEM [Concomitant]
     Dates: start: 20040717
  17. EPOGEN [Concomitant]
     Indication: DRUG USE FOR UNKNOWN INDICATION
     Route: 065
     Dates: start: 20040713
  18. HEPARIN [Concomitant]
     Dates: start: 20040714, end: 20040826
  19. POTASSIUM CHLORIDE [Concomitant]
     Dates: start: 20040725, end: 20040728

REACTIONS (6)
  - ARTERIAL STENOSIS [None]
  - ATRIAL FIBRILLATION [None]
  - GRAFT COMPLICATION [None]
  - ILEITIS [None]
  - LEUKOPENIA [None]
  - SUPRAVENTRICULAR TACHYCARDIA [None]
